FAERS Safety Report 17900076 (Version 1)
Quarter: 2020Q2

REPORT INFORMATION
  Report Type: Spontaneous
  Country: US (occurrence: US)
  Receive Date: 20200615
  Receipt Date: 20200615
  Transmission Date: 20200714
  Serious: No
  Sender: FDA-Public Use
  Company Number: None

PATIENT

DRUGS (1)
  1. NP THYROID [Suspect]
     Active Substance: LEVOTHYROXINE\LIOTHYRONINE
     Indication: THYROID DISORDER
     Dosage: ?          QUANTITY:1 DF DOSAGE FORM;OTHER ROUTE:60?
     Dates: start: 20200401, end: 20200613

REACTIONS (6)
  - Palpitations [None]
  - Chest pain [None]
  - Arrhythmia [None]
  - Fatigue [None]
  - Dizziness [None]
  - Dyspnoea [None]

NARRATIVE: CASE EVENT DATE: 20200501
